FAERS Safety Report 5026006-X (Version None)
Quarter: 2006Q2

REPORT INFORMATION
  Report Type: 
  Country: None (occurrence: None)
  Receive Date: 20060427
  Receipt Date: 20060227
  Transmission Date: 20061013
  Serious: Yes (Other)
  Sender: FDA-Public Use
  Company Number: US-JNJFOC-20060200383

PATIENT
  Age: 80 Year
  Sex: Female

DRUGS (2)
  1. RAZADYNE ER [Suspect]
     Indication: DEMENTIA ALZHEIMER'S TYPE
     Dosage: 12 MG, 1 IN 1 DAY
     Dates: start: 20000101, end: 20060115
  2. NAMENDA [Concomitant]

REACTIONS (1)
  - CEREBROVASCULAR ACCIDENT [None]
